FAERS Safety Report 21930183 (Version 2)
Quarter: 2024Q2

REPORT INFORMATION
  Report Type: Spontaneous
  Country: BR (occurrence: BR)
  Receive Date: 20230131
  Receipt Date: 20240613
  Transmission Date: 20240716
  Serious: Yes (Other)
  Sender: FDA-Public Use
  Company Number: BR-ABBVIE-4268921

PATIENT
  Age: 79 Year
  Sex: Female
  Weight: 60 kg

DRUGS (2)
  1. HUMIRA [Suspect]
     Active Substance: ADALIMUMAB
     Indication: Arthritis
     Route: 058
  2. HUMIRA [Suspect]
     Active Substance: ADALIMUMAB
     Indication: Psoriasis

REACTIONS (16)
  - Bedridden [Unknown]
  - Pruritus [Not Recovered/Not Resolved]
  - Gait disturbance [Not Recovered/Not Resolved]
  - Arthralgia [Not Recovered/Not Resolved]
  - Mass [Not Recovered/Not Resolved]
  - Pain in extremity [Not Recovered/Not Resolved]
  - Odynophagia [Unknown]
  - Mobility decreased [Unknown]
  - Pain [Unknown]
  - Nervousness [Unknown]
  - Glucose tolerance impaired [Unknown]
  - Electric shock sensation [Unknown]
  - Dysstasia [Unknown]
  - Grip strength decreased [Unknown]
  - Pain [Not Recovered/Not Resolved]
  - Ear pain [Unknown]

NARRATIVE: CASE EVENT DATE: 20221201
